FAERS Safety Report 13341674 (Version 1)
Quarter: 2017Q1

REPORT INFORMATION
  Report Type: Spontaneous
  Country: US (occurrence: US)
  Receive Date: 20170316
  Receipt Date: 20170316
  Transmission Date: 20170428
  Serious: No
  Sender: FDA-Public Use
  Company Number: US-GLAXOSMITHKLINE-US2017034556

PATIENT
  Age: 48 Year
  Sex: Female

DRUGS (2)
  1. ALLI [Suspect]
     Active Substance: ORLISTAT
     Indication: WEIGHT CONTROL
     Dosage: UNK
     Dates: start: 2009
  2. ALLI [Suspect]
     Active Substance: ORLISTAT
     Dosage: UNK

REACTIONS (3)
  - Product use issue [Unknown]
  - Weight increased [Unknown]
  - Hunger [Unknown]
